FAERS Safety Report 8118984-7 (Version None)
Quarter: 2012Q1

REPORT INFORMATION
  Report Type: 
  Country: None (occurrence: None)
  Receive Date: 20120207
  Receipt Date: 20120126
  Transmission Date: 20120608
  Serious: Yes (Other)
  Sender: FDA-Public Use
  Company Number: JP-ROCHE-GNE322356

PATIENT
  Sex: Male

DRUGS (2)
  1. LUCENTIS [Suspect]
     Route: 050
     Dates: start: 20111024
  2. LUCENTIS [Suspect]
     Indication: AGE-RELATED MACULAR DEGENERATION
     Route: 050
     Dates: start: 20110704

REACTIONS (1)
  - HAEMATOMA [None]
